FAERS Safety Report 7728849-8 (Version None)
Quarter: 2011Q3

REPORT INFORMATION
  Report Type: 
  Country: None (occurrence: None)
  Receive Date: 20110906
  Receipt Date: 20110824
  Transmission Date: 20111222
  Serious: Yes (Death, Hospitalization)
  Sender: FDA-Public Use
  Company Number: IT-CELGENEUS-083-21880-11063163

PATIENT
  Sex: Male

DRUGS (5)
  1. ALKERAN [Suspect]
     Dosage: MG/KG
     Route: 065
  2. REVLIMID [Suspect]
     Indication: MULTIPLE MYELOMA
     Dosage: 10 MILLIGRAM
     Route: 048
     Dates: start: 20110404, end: 20110518
  3. PREDNISONE [Suspect]
     Indication: MULTIPLE MYELOMA
     Route: 065
     Dates: start: 20110402, end: 20110518
  4. ALKERAN [Suspect]
     Indication: MULTIPLE MYELOMA
     Route: 065
     Dates: start: 20110404, end: 20110518
  5. PREDNISONE [Suspect]
     Dosage: MG/KG
     Route: 065

REACTIONS (1)
  - FEBRILE NEUTROPENIA [None]
